FAERS Safety Report 25807688 (Version 3)
Quarter: 2025Q4

REPORT INFORMATION
  Report Type: Spontaneous
  Country: US (occurrence: US)
  Receive Date: 20250916
  Receipt Date: 20251212
  Transmission Date: 20260118
  Serious: Yes (Hospitalization)
  Sender: BIOGEN
  Company Number: US-BIOGEN-2025BI01322515

PATIENT
  Age: 59 Year
  Sex: Female

DRUGS (2)
  1. TYSABRI [Suspect]
     Active Substance: NATALIZUMAB
     Indication: Multiple sclerosis
     Dates: start: 20210210, end: 20250806
  2. TYSABRI [Suspect]
     Active Substance: NATALIZUMAB
     Dates: start: 20110713, end: 20150715

REACTIONS (2)
  - Urinary tract infection [Unknown]
  - Hypokinesia [Unknown]
